FAERS Safety Report 7335572-0 (Version None)
Quarter: 2011Q1

REPORT INFORMATION
  Report Type: 
  Country: None (occurrence: None)
  Receive Date: 20110301
  Receipt Date: 20110301
  Transmission Date: 20110831
  Serious: Yes (Other)
  Sender: FDA-Public Use
  Company Number: None

PATIENT
  Sex: Female
  Weight: 56.6996 kg

DRUGS (2)
  1. REMICADE [Suspect]
     Indication: INFLAMMATORY BOWEL DISEASE
     Dosage: 300 MG
     Dates: start: 20101210, end: 20101210
  2. REMICADE [Suspect]
     Indication: COLITIS
     Dosage: 300 MG
     Dates: start: 20101210, end: 20101210

REACTIONS (7)
  - PAIN [None]
  - SYSTEMIC LUPUS ERYTHEMATOSUS [None]
  - HYPOAESTHESIA [None]
  - LYMPHADENOPATHY [None]
  - MYALGIA [None]
  - ARTHRITIS [None]
  - PARAESTHESIA [None]
